FAERS Safety Report 6886953-0 (Version None)
Quarter: 2010Q3

REPORT INFORMATION
  Report Type: 
  Country: None (occurrence: None)
  Receive Date: 20100730
  Receipt Date: 20100722
  Transmission Date: 20110219
  Serious: Yes (Other)
  Sender: FDA-Public Use
  Company Number: CA-JNJFOC-20100707789

PATIENT
  Sex: Male
  Weight: 80 kg

DRUGS (11)
  1. REMICADE [Suspect]
     Indication: COLITIS ULCERATIVE
     Route: 042
  2. ASACOL [Concomitant]
  3. ASPIRIN [Concomitant]
  4. DIOVAN [Concomitant]
  5. LIPITOR [Concomitant]
  6. SYMBICORT [Concomitant]
     Dosage: 2 PUFFS TWICE A DAY
  7. CLONAZEPAM [Concomitant]
  8. CHOLESTYRAMINE [Concomitant]
  9. IMURAN [Concomitant]
  10. INSULIN [Concomitant]
  11. HUMALOG [Concomitant]

REACTIONS (2)
  - BURSITIS INFECTIVE [None]
  - CHRONIC OBSTRUCTIVE PULMONARY DISEASE [None]
